FAERS Safety Report 15950601 (Version 1)
Quarter: 2019Q1

REPORT INFORMATION
  Report Type: Spontaneous
  Country: US (occurrence: US)
  Receive Date: 20190122
  Receipt Date: 20190122
  Transmission Date: 20190417
  Serious: No
  Sender: FDA-Public Use
  Company Number: None

PATIENT
  Age: 73 Year
  Sex: Female

DRUGS (2)
  1. H.P. ACTHAR [Suspect]
     Active Substance: CORTICOTROPIN
     Indication: SARCOIDOSIS
     Dosage: ?          OTHER STRENGTH:80MG/ML 5MLL/MDV;OTHER DOSE:80 UNITS;?
     Route: 058
     Dates: start: 20180115
  2. FUROSEMIDE. [Concomitant]
     Active Substance: FUROSEMIDE

REACTIONS (5)
  - Asthenia [None]
  - Skin discolouration [None]
  - Rash [None]
  - Dyspnoea [None]
  - Alopecia [None]
